FAERS Safety Report 14418479 (Version 1)
Quarter: 2018Q1

REPORT INFORMATION
  Report Type: Spontaneous
  Country: US (occurrence: US)
  Receive Date: 20180119
  Receipt Date: 20180119
  Transmission Date: 20180509
  Serious: Yes (Hospitalization)
  Sender: FDA-Public Use
  Company Number: None

PATIENT
  Age: 55 Year
  Sex: Male
  Weight: 111.6 kg

DRUGS (1)
  1. NIVOLUMAB [Suspect]
     Active Substance: NIVOLUMAB

REACTIONS (13)
  - Chest discomfort [None]
  - Metastases to liver [None]
  - Hypophagia [None]
  - Dehydration [None]
  - Diarrhoea [None]
  - Nausea [None]
  - Renal failure [None]
  - Hypotension [None]
  - Transaminases increased [None]
  - Malaise [None]
  - Dyspnoea [None]
  - Colitis [None]
  - Cough [None]

NARRATIVE: CASE EVENT DATE: 20180116
